FAERS Safety Report 7511788-5 (Version None)
Quarter: 2011Q2

REPORT INFORMATION
  Report Type: 
  Country: None (occurrence: None)
  Receive Date: 20110531
  Receipt Date: 20110523
  Transmission Date: 20111010
  Serious: Yes (Death, Hospitalization)
  Sender: FDA-Public Use
  Company Number: FR-JNJFOC-JAFRA9747

PATIENT
  Weight: 7 kg

DRUGS (4)
  1. LOPERAMIDE [Suspect]
     Route: 048
  2. BACTRIM(R) [Concomitant]
     Route: 048
     Dates: start: 19901119
  3. LOPERAMIDE [Suspect]
     Indication: GASTROENTERITIS
     Route: 048
     Dates: start: 19901119, end: 19901120
  4. CLOFOCTOL [Concomitant]
     Route: 054
     Dates: start: 19901119

REACTIONS (8)
  - HYPOTHERMIA [None]
  - COMA [None]
  - SCREAMING [None]
  - HYPOKINESIA [None]
  - CARDIAC ARREST [None]
  - MONOCYTOSIS [None]
  - OCULOGYRIC CRISIS [None]
  - LYMPHOCYTOSIS [None]
